FAERS Safety Report 23581729 (Version 1)
Quarter: 2024Q1

REPORT INFORMATION
  Report Type: Spontaneous
  Country: HR (occurrence: HR)
  Receive Date: 20240229
  Receipt Date: 20240229
  Transmission Date: 20240410
  Serious: Yes (Other)
  Sender: FDA-Public Use
  Company Number: HR-ELI_LILLY_AND_COMPANY-HR202402012865

PATIENT
  Age: 61 Year
  Sex: Female

DRUGS (5)
  1. ABEMACICLIB [Suspect]
     Active Substance: ABEMACICLIB
     Indication: Invasive breast carcinoma
     Dosage: 150 MG, UNKNOWN
     Route: 065
     Dates: start: 202311
  2. ANASTROZOLE [Concomitant]
     Active Substance: ANASTROZOLE
     Indication: Invasive breast carcinoma
     Dosage: 1000 MG, UNKNOWN
     Route: 065
     Dates: start: 202311
  3. VITAMIN D NOS [Concomitant]
     Active Substance: VITAMIN D NOS
     Indication: Invasive breast carcinoma
     Dosage: 800 U, UNKNOWN
     Route: 065
     Dates: start: 202311
  4. ZOLEDRONIC ACID [Concomitant]
     Active Substance: ZOLEDRONIC ACID
     Indication: Invasive breast carcinoma
     Dosage: UNK, UNKNOWN
     Route: 065
     Dates: start: 202311
  5. BISOPROLOL FUMARATE\HYDROCHLOROTHIAZIDE [Concomitant]
     Active Substance: BISOPROLOL FUMARATE\HYDROCHLOROTHIAZIDE
     Indication: Product used for unknown indication

REACTIONS (1)
  - Hepatotoxicity [Unknown]
